FAERS Safety Report 5128884-2 (Version None)
Quarter: 2006Q4

REPORT INFORMATION
  Report Type: 
  Country: None (occurrence: None)
  Receive Date: 20061017
  Receipt Date: 20060210
  Transmission Date: 20070319
  Serious: No
  Sender: FDA-Public Use
  Company Number: US-GLAXOSMITHKLINE-A0593281A

PATIENT
  Age: 57 Year
  Sex: Female

DRUGS (1)
  1. CEFTIN [Suspect]
     Indication: PHARYNGITIS
     Route: 048
     Dates: start: 20060205

REACTIONS (1)
  - RASH [None]
